FAERS Safety Report 20643610 (Version 1)
Quarter: 2022Q1

REPORT INFORMATION
  Report Type: Spontaneous
  Country: RS (occurrence: RS)
  Receive Date: 20220328
  Receipt Date: 20220328
  Transmission Date: 20220423
  Serious: Yes (Other)
  Sender: FDA-Public Use
  Company Number: RS-TEVA-2022-RS-2012203

PATIENT
  Age: 64 Year
  Sex: Female
  Weight: 72 kg

DRUGS (5)
  1. LEVOFLOXACIN [Suspect]
     Active Substance: LEVOFLOXACIN
     Indication: Pneumonia
     Dosage: 500 MILLIGRAM DAILY;
     Route: 048
     Dates: start: 20210824, end: 20210826
  2. Metaflex [Concomitant]
     Indication: Pyrexia
     Route: 048
     Dates: start: 20210823
  3. AMLODIPINE BESYLATE [Concomitant]
     Active Substance: AMLODIPINE BESYLATE
     Indication: Hypertension
     Dosage: 5 MILLIGRAM DAILY;
     Route: 048
     Dates: start: 2011
  4. ERYNORM [Concomitant]
     Indication: Hypertension
     Dosage: 50 MILLIGRAM DAILY;
     Route: 048
     Dates: start: 2011
  5. ROSUVASTATIN CALCIUM [Concomitant]
     Active Substance: ROSUVASTATIN CALCIUM
     Indication: Dyslipidaemia
     Dosage: 40 MILLIGRAM DAILY;
     Route: 048
     Dates: start: 2018

REACTIONS (3)
  - Tongue oedema [Recovered/Resolved]
  - Dysphagia [Recovered/Resolved]
  - Dyspnoea [Recovered/Resolved]

NARRATIVE: CASE EVENT DATE: 20210801
